FAERS Safety Report 4287928-0 (Version None)
Quarter: 2004Q1

REPORT INFORMATION
  Report Type: 
  Country: None (occurrence: None)
  Receive Date: 20040209
  Receipt Date: 20031031
  Transmission Date: 20041129
  Serious: No
  Sender: FDA-Public Use
  Company Number: US-GLAXOSMITHKLINE-A0432404A

PATIENT
  Age: 77 Year
  Sex: Female

DRUGS (1)
  1. PAXIL [Suspect]
     Dosage: 12.5MG PER DAY
     Route: 048
     Dates: start: 20030902

REACTIONS (6)
  - GASTROINTESTINAL MOTILITY DISORDER [None]
  - LACRIMATION INCREASED [None]
  - RHINORRHOEA [None]
  - SLEEP DISORDER [None]
  - TREMOR [None]
  - VISION BLURRED [None]
